FAERS Safety Report 10339746 (Version 1)
Quarter: 2014Q3

REPORT INFORMATION
  Report Type: Spontaneous
  Country: GB (occurrence: None)
  Receive Date: 20140722
  Receipt Date: 20140722
  Transmission Date: 20150326
  Serious: Yes (Disabling)
  Sender: FDA-Public Use
  Company Number: 2440497

PATIENT
  Sex: Female

DRUGS (3)
  1. SODIUM CHLORIDE. [Suspect]
     Active Substance: SODIUM CHLORIDE
     Indication: DRUG THERAPY
  2. DEFEROXAMINE MESYLATE. [Suspect]
     Active Substance: DEFEROXAMINE MESYLATE
     Indication: PRODUCT USED FOR UNKNOWN INDICATION
  3. WATER FOR INJECTION [Suspect]
     Active Substance: WATER
     Indication: DRUG THERAPY

REACTIONS (6)
  - Injection site mass [None]
  - Body temperature increased [None]
  - Pain in extremity [None]
  - Gait disturbance [None]
  - Pain [None]
  - Malaise [None]
